FAERS Safety Report 14881924 (Version 4)
Quarter: 2018Q2

REPORT INFORMATION
  Report Type: Spontaneous
  Country: US (occurrence: US)
  Receive Date: 20180511
  Receipt Date: 20180629
  Transmission Date: 20180711
  Serious: Yes (Hospitalization, Other)
  Sender: FDA-Public Use
  Company Number: US-IMPAX LABORATORIES, INC-2018-IPXL-01557

PATIENT
  Age: 77 Year
  Sex: Female

DRUGS (1)
  1. RYTARY [Suspect]
     Active Substance: CARBIDOPA\LEVODOPA
     Indication: PRODUCT USED FOR UNKNOWN INDICATION
     Dosage: 36.25/145 MG, SIX CAPSULES PER DAY
     Route: 048

REACTIONS (5)
  - Neoplasm malignant [Unknown]
  - Oedema peripheral [Unknown]
  - General physical health deterioration [Unknown]
  - Asthma [Unknown]
  - Pulmonary congestion [Unknown]
